FAERS Safety Report 7608168-0 (Version None)
Quarter: 2011Q3

REPORT INFORMATION
  Report Type: 
  Country: None (occurrence: None)
  Receive Date: 20110714
  Receipt Date: 20110706
  Transmission Date: 20111222
  Serious: Yes (Hospitalization, Other)
  Sender: FDA-Public Use
  Company Number: JP-ASTELLAS-2011JP003729

PATIENT
  Sex: Female

DRUGS (10)
  1. PROGRAF [Suspect]
     Indication: RHEUMATOID ARTHRITIS
     Dosage: 1 MG, UID/QD
     Route: 048
     Dates: start: 20061204, end: 20110530
  2. SELBEX [Concomitant]
     Indication: GASTRITIS
     Dosage: 50 MG, TID
     Route: 048
  3. CONIEL [Concomitant]
     Indication: HYPERTENSION
     Dosage: 4 MG, UID/QD
     Route: 048
  4. VITAMEDIN [Concomitant]
     Indication: HYPOVITAMINOSIS
     Dosage: 25 MG, BID
     Route: 048
  5. CELECOXIB [Concomitant]
     Indication: RHEUMATOID ARTHRITIS
     Dosage: 100 MG, BID
     Route: 048
  6. JUVELA N [Concomitant]
     Indication: SCLERODERMA
     Dosage: 100 MG, TID
     Route: 048
  7. BUFFERIN [Concomitant]
     Indication: SCLERODERMA
     Dosage: 81 MG, UID/QD
     Route: 048
  8. PREDNISOLONE [Concomitant]
     Indication: RHEUMATOID ARTHRITIS
     Dosage: 5 MG, UID/QD
     Route: 048
  9. RIMATIL [Concomitant]
     Indication: RHEUMATOID ARTHRITIS
     Dosage: 100 MG, UID/QD
     Route: 048
  10. ONEALFA [Concomitant]
     Indication: OSTEOPOROSIS
     Dosage: 0.5 UG, UID/QD
     Route: 048

REACTIONS (3)
  - INAPPROPRIATE ANTIDIURETIC HORMONE SECRETION [None]
  - AMNESIA [None]
  - HYPONATRAEMIA [None]
